FAERS Safety Report 9486488 (Version 1)
Quarter: 2013Q3

REPORT INFORMATION
  Report Type: Spontaneous
  Country: US (occurrence: US)
  Receive Date: 20130829
  Receipt Date: 20130829
  Transmission Date: 20140515
  Serious: No
  Sender: FDA-Public Use
  Company Number: US-009507513-1308USA013995

PATIENT
  Age: 72 Year
  Sex: Female

DRUGS (7)
  1. FARESTON [Suspect]
     Indication: BREAST CANCER METASTATIC
     Dosage: 60 MG, QD
     Route: 048
     Dates: start: 201206
  2. CRESTOR [Concomitant]
  3. HYDROCHLOROTHIAZIDE [Concomitant]
  4. BYSTOLIC [Concomitant]
  5. MYRBETRIQ [Concomitant]
  6. PLAQUENIL [Concomitant]
  7. CELEBREX [Concomitant]

REACTIONS (5)
  - Hot flush [Not Recovered/Not Resolved]
  - Hyperhidrosis [Not Recovered/Not Resolved]
  - Weight increased [Unknown]
  - Cystitis [Not Recovered/Not Resolved]
  - Local swelling [Unknown]
